FAERS Safety Report 4914297-2 (Version None)
Quarter: 2006Q1

REPORT INFORMATION
  Report Type: 
  Country: None (occurrence: None)
  Receive Date: 20060216
  Receipt Date: 20060207
  Transmission Date: 20060701
  Serious: Yes (Hospitalization, Other)
  Sender: FDA-Public Use
  Company Number: US-ABBOTT-06P-163-0324273-00

PATIENT
  Sex: Female
  Weight: 65.83 kg

DRUGS (8)
  1. HUMIRA [Suspect]
     Indication: RHEUMATOID ARTHRITIS
     Route: 058
     Dates: start: 20040101
  2. LEVOTHYROXINE SODIUM [Concomitant]
     Indication: HYPOTHYROIDISM
     Route: 048
  3. RALOXIFENE HYDROCHLORIDE [Concomitant]
     Indication: HORMONE REPLACEMENT THERAPY
     Route: 048
  4. ESOMEPRAZOLE [Concomitant]
     Indication: GASTROOESOPHAGEAL REFLUX DISEASE
     Route: 048
  5. MONTEKULAST SODIUM [Concomitant]
     Indication: ASTHMA
     Route: 048
  6. FOLIC ACID [Concomitant]
     Indication: VITAMIN SUPPLEMENTATION
     Route: 048
     Dates: start: 20030101
  7. METHOTREXATE [Concomitant]
     Indication: RHEUMATOID ARTHRITIS
     Route: 048
     Dates: start: 20030101
  8. FLUTICASONE PROPIONATE [Concomitant]
     Indication: ASTHMA
     Route: 048

REACTIONS (3)
  - FALL [None]
  - RHEUMATOID ARTHRITIS [None]
  - TRAUMATIC FRACTURE [None]
